FAERS Safety Report 9302188 (Version 2)
Quarter: 2013Q4

REPORT INFORMATION
  Report Type: Spontaneous
  Country: US (occurrence: US)
  Receive Date: 20130522
  Receipt Date: 20131108
  Transmission Date: 20140711
  Serious: Yes (Hospitalization)
  Sender: FDA-Public Use
  Company Number: US-B.I. PHARMACEUTICALS,INC./RIDGEFIELD-2013-BI-14111BP

PATIENT
  Sex: Female
  Weight: 95.25 kg

DRUGS (12)
  1. PRADAXA [Suspect]
     Indication: ANTICOAGULANT THERAPY
     Route: 048
     Dates: start: 20110207
  2. PRADAXA [Suspect]
     Indication: PERIPHERAL EMBOLISM
     Dosage: 150 MG
     Route: 048
     Dates: end: 201205
  3. PRADAXA [Suspect]
     Indication: ATRIAL FIBRILLATION
  4. ALEVE [Suspect]
     Indication: ARTHRALGIA
  5. PRAVACHOL [Concomitant]
     Indication: HYPERLIPIDAEMIA
     Dosage: 20 MG
     Route: 048
  6. SYNTHROID [Concomitant]
     Indication: HYPOTHYROIDISM
     Dosage: 137 MCG
     Route: 048
  7. NEURONTIN [Concomitant]
     Dosage: 600 MG
     Route: 048
  8. ULTRACET [Concomitant]
     Indication: OSTEOARTHRITIS
     Route: 048
  9. ZIAC [Concomitant]
     Route: 048
  10. SERTALINE [Concomitant]
     Dosage: 75 MG
     Route: 048
  11. TEMAZEPAM [Concomitant]
     Indication: INSOMNIA
     Dosage: 30 MG
     Route: 048
  12. HYDROXYZINE [Concomitant]
     Indication: INSOMNIA
     Route: 048

REACTIONS (4)
  - Upper gastrointestinal haemorrhage [Unknown]
  - Pneumonia [Unknown]
  - Increased tendency to bruise [Unknown]
  - Blood urea increased [Unknown]
